FAERS Safety Report 23195177 (Version 2)
Quarter: 2023Q4

REPORT INFORMATION
  Report Type: Report from Study
  Country: FR (occurrence: FR)
  Receive Date: 20231117
  Receipt Date: 20231129
  Transmission Date: 20240109
  Serious: Yes (Death, Hospitalization)
  Sender: FDA-Public Use
  Company Number: FR-KOREA IPSEN Pharma-2023-24598

PATIENT

DRUGS (5)
  1. CABOZANTINIB [Suspect]
     Active Substance: CABOZANTINIB
     Indication: Spindle cell sarcoma
     Dosage: 40 MG
     Route: 048
     Dates: start: 20231019
  2. CABOZANTINIB [Suspect]
     Active Substance: CABOZANTINIB
     Indication: Off label use
  3. PEMBROLIZUMAB [Suspect]
     Active Substance: PEMBROLIZUMAB
     Indication: Spindle cell sarcoma
     Dosage: 200 MG
     Route: 042
     Dates: start: 20231019
  4. PREDNISONE [Concomitant]
     Active Substance: PREDNISONE
     Dosage: 30 MG (2)
     Dates: start: 20230701
  5. POLYETHYLENE GLYCOLS [Concomitant]
     Active Substance: POLYETHYLENE GLYCOLS
     Dosage: 1 G (3)
     Route: 048
     Dates: start: 20230701

REACTIONS (6)
  - Asthenia [Fatal]
  - Constipation [Fatal]
  - Abdominal pain [Fatal]
  - Back pain [Unknown]
  - General physical health deterioration [Fatal]
  - Off label use [Unknown]

NARRATIVE: CASE EVENT DATE: 20231019
